FAERS Safety Report 21191617 (Version 1)
Quarter: 2022Q3

REPORT INFORMATION
  Report Type: Spontaneous
  Country: CN (occurrence: CN)
  Receive Date: 20220809
  Receipt Date: 20220809
  Transmission Date: 20221027
  Serious: Yes (Other)
  Sender: FDA-Public Use
  Company Number: CN-PFIZER INC-PV202200038308

PATIENT
  Age: 2 Year
  Sex: Female
  Weight: 15.5 kg

DRUGS (2)
  1. LINEZOLID [Suspect]
     Active Substance: LINEZOLID
     Indication: Thyroid gland abscess
     Dosage: 165MG, Q8H
     Route: 041
     Dates: start: 20220706, end: 20220710
  2. LINEZOLID [Suspect]
     Active Substance: LINEZOLID
     Indication: Thyroid gland abscess
     Dosage: 0.25 TABLET, 3X/DAY
     Route: 048
     Dates: start: 20220711, end: 20220729

REACTIONS (4)
  - Full blood count decreased [Unknown]
  - Platelet count decreased [Unknown]
  - Platelet count increased [Recovered/Resolved]
  - White blood cell count decreased [Unknown]

NARRATIVE: CASE EVENT DATE: 20220715
